FAERS Safety Report 6420986-3 (Version None)
Quarter: 2009Q4

REPORT INFORMATION
  Report Type: 
  Country: None (occurrence: None)
  Receive Date: 20091030
  Receipt Date: 20091019
  Transmission Date: 20100525
  Serious: Yes (Other)
  Sender: FDA-Public Use
  Company Number: US-ROCHE-663358

PATIENT
  Sex: Female

DRUGS (4)
  1. PEGASYS [Suspect]
     Indication: HEPATITIS C
     Dosage: FORM: PRE-FILLE SYRINGE
     Route: 065
     Dates: start: 20091002
  2. RIBAVIRIN (NON-ROCHE) [Suspect]
     Indication: HEPATITIS C
     Dosage: DIVIDED DOSES
     Route: 065
     Dates: start: 20091002
  3. XANAX [Concomitant]
     Indication: ANXIETY
     Dosage: OTHER INDICATION: DEPRESSION
  4. PROZAC [Concomitant]
     Indication: ANXIETY
     Dosage: OTHER INDICATION: DEPRESSION

REACTIONS (9)
  - ARTHRALGIA [None]
  - EPISTAXIS [None]
  - EYE IRRITATION [None]
  - EYE PAIN [None]
  - FATIGUE [None]
  - NAUSEA [None]
  - OROPHARYNGEAL PAIN [None]
  - PAIN IN EXTREMITY [None]
  - VISION BLURRED [None]
